FAERS Safety Report 6020254-8 (Version None)
Quarter: 2008Q4

REPORT INFORMATION
  Report Type: 
  Country: None (occurrence: None)
  Receive Date: 20081226
  Receipt Date: 20081217
  Transmission Date: 20090506
  Serious: Yes (Hospitalization, Other)
  Sender: FDA-Public Use
  Company Number: PHFR2005GB02496

PATIENT
  Sex: Female

DRUGS (1)
  1. CLOZARIL [Suspect]
     Indication: SCHIZOPHRENIA
     Dosage: 550 MG
     Route: 048
     Dates: start: 20020301

REACTIONS (9)
  - HAEMOGLOBIN DECREASED [None]
  - HODGKIN'S DISEASE [None]
  - HODGKIN'S DISEASE NODULAR SCLEROSIS STAGE UNSPECIFIED [None]
  - LYMPHOMA [None]
  - PLATELET COUNT DECREASED [None]
  - POLYP [None]
  - POSITRON EMISSION TOMOGRAM ABNORMAL [None]
  - TRANSPLANT [None]
  - WHITE BLOOD CELL COUNT DECREASED [None]
